FAERS Safety Report 14800144 (Version 1)
Quarter: 2018Q2

REPORT INFORMATION
  Report Type: Other
  Country: GB (occurrence: GB)
  Receive Date: 20180424
  Receipt Date: 20180424
  Transmission Date: 20180711
  Serious: Yes (Life-Threatening)
  Sender: FDA-Public Use
  Company Number: GB-ACIC FINE CHEMICALS INC-2046371

PATIENT
  Age: 19 Year
  Sex: Female

DRUGS (3)
  1. RANITIDINE. [Suspect]
     Active Substance: RANITIDINE
     Indication: GASTRIC DISORDER
     Route: 048
  2. CETIRIZINE [Concomitant]
     Active Substance: CETIRIZINE HYDROCHLORIDE
  3. SLOW SODIUM [Concomitant]

REACTIONS (9)
  - Dizziness [Recovered/Resolved]
  - Chest discomfort [Recovered/Resolved]
  - Rhinorrhoea [Recovered/Resolved]
  - Rash [Recovered/Resolved]
  - Abdominal pain [Recovered/Resolved]
  - Chills [Recovered/Resolved]
  - Feeling cold [Recovered/Resolved]
  - Pruritus [Recovered/Resolved]
  - Throat tightness [Recovered/Resolved]
